FAERS Safety Report 10633797 (Version 3)
Quarter: 2015Q1

REPORT INFORMATION
  Report Type: Spontaneous
  Country: US (occurrence: US)
  Receive Date: 20141205
  Receipt Date: 20150303
  Transmission Date: 20150720
  Serious: Yes (Hospitalization)
  Sender: FDA-Public Use
  Company Number: US-JNJFOC-20141117142

PATIENT
  Age: 44 Year
  Sex: Male
  Weight: 97 kg

DRUGS (23)
  1. DITROPAN XL [Suspect]
     Active Substance: OXYBUTYNIN CHLORIDE
     Indication: URINARY INCONTINENCE
     Route: 048
  2. PLACEBO [Suspect]
     Active Substance: UNSPECIFIED INGREDIENT
     Indication: SMOKING CESSATION THERAPY
     Dosage: 0.5-1 MG
     Route: 048
     Dates: start: 20131002, end: 20131117
  3. NICOTINE. [Suspect]
     Active Substance: NICOTINE
     Indication: SMOKING CESSATION THERAPY
     Route: 062
     Dates: start: 20131109, end: 20131118
  4. DITROPAN XL [Suspect]
     Active Substance: OXYBUTYNIN CHLORIDE
     Indication: URINARY INCONTINENCE
     Route: 048
     Dates: start: 20140818
  5. DITROPAN XL [Suspect]
     Active Substance: OXYBUTYNIN CHLORIDE
     Indication: URINARY INCONTINENCE
     Route: 048
     Dates: start: 2003, end: 20140817
  6. PLACEBO [Suspect]
     Active Substance: UNSPECIFIED INGREDIENT
     Indication: SMOKING CESSATION THERAPY
     Route: 048
     Dates: start: 20131002, end: 20131117
  7. CLOZARIL [Concomitant]
     Active Substance: CLOZAPINE
     Indication: SCHIZOAFFECTIVE DISORDER
     Route: 048
     Dates: start: 20140823
  8. CLOZARIL [Concomitant]
     Active Substance: CLOZAPINE
     Indication: SCHIZOAFFECTIVE DISORDER
     Route: 048
     Dates: start: 1993, end: 20140822
  9. CLONAZEPAM. [Concomitant]
     Active Substance: CLONAZEPAM
     Indication: SCHIZOAFFECTIVE DISORDER
     Route: 048
     Dates: start: 2004
  10. DEPAKOTE [Concomitant]
     Active Substance: DIVALPROEX SODIUM
     Indication: AFFECTIVE DISORDER
     Route: 048
     Dates: start: 2012
  11. NICOTINE. [Suspect]
     Active Substance: NICOTINE
     Indication: SMOKING CESSATION THERAPY
     Route: 062
     Dates: start: 20131109, end: 20131118
  12. PLACEBO [Suspect]
     Active Substance: UNSPECIFIED INGREDIENT
     Indication: SMOKING CESSATION THERAPY
     Route: 062
     Dates: start: 20131109, end: 20131118
  13. PLACEBO [Suspect]
     Active Substance: UNSPECIFIED INGREDIENT
     Indication: SMOKING CESSATION THERAPY
     Route: 062
     Dates: start: 20131109, end: 20131118
  14. EFFEXOR [Concomitant]
     Active Substance: VENLAFAXINE HYDROCHLORIDE
     Indication: SCHIZOAFFECTIVE DISORDER
     Route: 048
     Dates: start: 2009
  15. NICOTIANA TABACUM [Concomitant]
     Route: 065
     Dates: start: 20140422, end: 20140422
  16. VARENICLINE [Suspect]
     Active Substance: VARENICLINE
     Indication: SMOKING CESSATION THERAPY
     Dosage: 0.5-1 MG
     Route: 065
     Dates: start: 20131002, end: 20131117
  17. NICOTINE. [Suspect]
     Active Substance: NICOTINE
     Indication: SMOKING CESSATION THERAPY
     Route: 062
     Dates: start: 20131109, end: 20131118
  18. TYLENOL [Concomitant]
     Active Substance: ACETAMINOPHEN
     Indication: PAIN
     Route: 048
     Dates: start: 20140207
  19. PRAZOSIN [Concomitant]
     Active Substance: PRAZOSIN
     Route: 048
     Dates: start: 2012
  20. VARENICLINE [Concomitant]
     Active Substance: VARENICLINE
     Route: 048
     Dates: start: 20140725
  21. BUPROPION [Suspect]
     Active Substance: BUPROPION
     Indication: SMOKING CESSATION THERAPY
     Route: 048
     Dates: start: 20131002, end: 20131117
  22. PLACEBO [Suspect]
     Active Substance: UNSPECIFIED INGREDIENT
     Indication: SMOKING CESSATION THERAPY
     Route: 062
     Dates: start: 20131109, end: 20131118
  23. METFORMIN [Concomitant]
     Active Substance: METFORMIN HYDROCHLORIDE
     Indication: DIABETES MELLITUS
     Route: 048
     Dates: start: 2005

REACTIONS (3)
  - Depression [Recovered/Resolved]
  - Suicidal ideation [Unknown]
  - Sedation [Unknown]

NARRATIVE: CASE EVENT DATE: 20140819
